FAERS Safety Report 15302196 (Version 3)
Quarter: 2018Q3

REPORT INFORMATION
  Report Type: Spontaneous
  Country: US (occurrence: US)
  Receive Date: 20180821
  Receipt Date: 20180928
  Transmission Date: 20181010
  Serious: No
  Sender: FDA-Public Use
  Company Number: US-BAYER-2018-153445

PATIENT
  Age: 55 Year
  Sex: Female

DRUGS (6)
  1. ADEMPAS [Suspect]
     Active Substance: RIOCIGUAT
     Dosage: 1.5 MG, TID
     Route: 048
     Dates: start: 20180806
  2. REMODULIN [Suspect]
     Active Substance: TREPROSTINIL
     Indication: PULMONARY ARTERIAL HYPERTENSION
     Dosage: 0.022 ?G/KG, CONT
     Route: 017
     Dates: start: 20180630
  3. REMODULIN [Suspect]
     Active Substance: TREPROSTINIL
     Indication: PULMONARY ARTERIAL HYPERTENSION
     Dosage: 0.025 ?G/KG, CONT
     Route: 058
  4. ADEMPAS [Suspect]
     Active Substance: RIOCIGUAT
     Dosage: UNK
  5. ADEMPAS [Suspect]
     Active Substance: RIOCIGUAT
     Dosage: 2 MG, TID
     Dates: start: 20180827
  6. DILANTIN [Suspect]
     Active Substance: PHENYTOIN
     Dosage: UNK

REACTIONS (13)
  - Diarrhoea [Recovered/Resolved]
  - Infusion site erythema [None]
  - Infusion site warmth [None]
  - Fatigue [None]
  - Dyschezia [Not Recovered/Not Resolved]
  - Vomiting [None]
  - Infusion site bruising [None]
  - Nausea [None]
  - Hypersomnia [None]
  - Infusion site pain [Not Recovered/Not Resolved]
  - Gastrointestinal motility disorder [Not Recovered/Not Resolved]
  - Feeling abnormal [None]
  - Faeces hard [Not Recovered/Not Resolved]

NARRATIVE: CASE EVENT DATE: 20180725
